FAERS Safety Report 6978225-0 (Version None)
Quarter: 2010Q3

REPORT INFORMATION
  Report Type: 
  Country: None (occurrence: None)
  Receive Date: 20100913
  Receipt Date: 20100831
  Transmission Date: 20110219
  Serious: Yes (Hospitalization, Other)
  Sender: FDA-Public Use
  Company Number: FR-ELI_LILLY_AND_COMPANY-FR201009000809

PATIENT
  Age: 75 Year
  Sex: Female

DRUGS (1)
  1. FORTEO [Suspect]
     Indication: OSTEOPOROSIS
     Dosage: 20 UG, DAILY (1/D)
     Route: 058
     Dates: start: 20091217, end: 20100727

REACTIONS (7)
  - COUGH [None]
  - DECREASED APPETITE [None]
  - HEADACHE [None]
  - INFLAMMATION [None]
  - METASTASES TO BONE [None]
  - NAUSEA [None]
  - PYREXIA [None]
